FAERS Safety Report 9906819 (Version 2)
Quarter: 2014Q1

REPORT INFORMATION
  Report Type: Spontaneous
  Country: US (occurrence: US)
  Receive Date: 20140218
  Receipt Date: 20140218
  Transmission Date: 20141002
  Serious: No
  Sender: FDA-Public Use
  Company Number: US-GILEAD-2012-0052523

PATIENT
  Age: 50 Year
  Sex: Female

DRUGS (1)
  1. LETAIRIS [Suspect]
     Indication: PULMONARY ARTERIAL HYPERTENSION
     Dosage: 5 MG, UNK
     Route: 048
     Dates: start: 20100513

REACTIONS (6)
  - Nail disorder [Not Recovered/Not Resolved]
  - Skin reaction [Not Recovered/Not Resolved]
  - Skin exfoliation [Not Recovered/Not Resolved]
  - Palpitations [Not Recovered/Not Resolved]
  - Abdominal pain [Not Recovered/Not Resolved]
  - Rash [Unknown]
